FAERS Safety Report 17140604 (Version 1)
Quarter: 2019Q4

REPORT INFORMATION
  Report Type: Spontaneous
  Country: DE (occurrence: DE)
  Receive Date: 20191211
  Receipt Date: 20191211
  Transmission Date: 20200122
  Serious: Yes (Hospitalization)
  Sender: FDA-Public Use
  Company Number: NVSC2019DE063658

PATIENT
  Age: 2 Year
  Sex: Male

DRUGS (1)
  1. AMOXICILLIN. [Suspect]
     Active Substance: AMOXICILLIN
     Indication: OTITIS MEDIA
     Dosage: 8 ML
     Route: 042

REACTIONS (4)
  - Fibrin D dimer increased [Unknown]
  - Transaminases increased [Unknown]
  - Incorrect route of product administration [Unknown]
  - Vomiting [Recovering/Resolving]

NARRATIVE: CASE EVENT DATE: 20190930
